FAERS Safety Report 8795727 (Version 1)
Quarter: 2012Q4

REPORT INFORMATION
  Report Type: 
  Country: US (occurrence: US)
  Receive Date: 20120919
  Receipt Date: 20120919
  Transmission Date: 20130627
  Serious: No
  Sender: FDA-Public Use
  Company Number: US-ASTRAZENECA-2012SE43388

PATIENT
  Age: 54 Year
  Sex: Male
  Weight: 130.2 kg

DRUGS (10)
  1. SEROQUEL [Suspect]
     Indication: BIPOLAR DISORDER
     Route: 048
  2. SEROQUEL [Suspect]
     Indication: BIPOLAR DISORDER
     Route: 048
     Dates: start: 2002
  3. SEROQUEL [Suspect]
     Indication: BIPOLAR DISORDER
     Route: 048
  4. SEROQUEL [Suspect]
     Indication: BIPOLAR DISORDER
     Route: 048
  5. BENADRYL [Concomitant]
  6. NYQUIL [Concomitant]
     Indication: MULTIPLE ALLERGIES
  7. ALEVE [Concomitant]
  8. ACID REDUCER [Concomitant]
  9. TOPAMAX [Concomitant]
     Route: 048
     Dates: start: 2002
  10. ZOLOFT [Concomitant]
     Dates: start: 2002

REACTIONS (6)
  - Drug screen positive [Unknown]
  - Withdrawal syndrome [Unknown]
  - Bruxism [Unknown]
  - Insomnia [Unknown]
  - Intentional drug misuse [Unknown]
  - Drug dose omission [Unknown]
